FAERS Safety Report 4305453-5 (Version None)
Quarter: 2004Q1

REPORT INFORMATION
  Report Type: 
  Country: None (occurrence: None)
  Receive Date: 20040226
  Receipt Date: 20040212
  Transmission Date: 20041129
  Serious: Yes (Other)
  Sender: FDA-Public Use
  Company Number: JP-ROCHE-358894

PATIENT
  Age: 7 Year
  Sex: Female
  Weight: 25 kg

DRUGS (4)
  1. TAMIFLU [Suspect]
     Dosage: FORM REPORTED AS DRY SYRUP
     Route: 048
     Dates: start: 20040131, end: 20040131
  2. TOMIRON [Concomitant]
  3. ISALON [Concomitant]
  4. EMPYNASE [Concomitant]

REACTIONS (1)
  - ANAPHYLACTIC SHOCK [None]
